FAERS Safety Report 9686257 (Version 1)
Quarter: 2013Q4

REPORT INFORMATION
  Report Type: Report from Study
  Country: CA (occurrence: CA)
  Receive Date: 20131113
  Receipt Date: 20131113
  Transmission Date: 20140711
  Serious: Yes (Other)
  Sender: FDA-Public Use
  Company Number: CA-009507513-1311CAN002573

PATIENT
  Age: 49 Year
  Sex: Male

DRUGS (3)
  1. VICTRELIS [Suspect]
     Indication: CHRONIC HEPATITIS C
     Dosage: 800 MG 3/1 DAYS
     Route: 048
  2. PEGASYS [Suspect]
     Indication: CHRONIC HEPATITIS C
     Dosage: 180 MICROGRAM, QW (0.5 ML PREFILLED SYRINGE)
     Route: 058
     Dates: start: 20130409
  3. COPEGUS [Suspect]
     Indication: CHRONIC HEPATITIS C
     Dosage: 1000 MG 1 IN 1 D
     Route: 048
     Dates: start: 20130409

REACTIONS (1)
  - Hepatitis C virus test positive [Not Recovered/Not Resolved]
